FAERS Safety Report 8334339-4 (Version None)
Quarter: 2012Q1

REPORT INFORMATION
  Report Type: 
  Country: None (occurrence: None)
  Receive Date: 20120329
  Receipt Date: 20110511
  Transmission Date: 20120608
  Serious: Yes (Disabling)
  Sender: FDA-Public Use
  Company Number: WAES 1105USA01992

PATIENT
  Age: 42 Year
  Sex: Female

DRUGS (8)
  1. PHENERGAN (PROMETHAZINE HYDROCHL) [Concomitant]
  2. FOSAPREPITANT DIMEGLUMINE [Suspect]
     Indication: PROPHYLAXIS OF NAUSEA AND VOMITING
     Dosage: 150 MG/1X/IV
     Route: 042
     Dates: start: 20110504
  3. ALOXI [Concomitant]
  4. DECADRON [Concomitant]
  5. CYCLOPHOSPHAMIDE [Concomitant]
  6. FOSAPREPITANT DIMEGLUMINE [Suspect]
     Indication: PROPHYLAXIS OF NAUSEA AND VOMITING
     Dosage: 125 MG/1X/IV
     Route: 042
     Dates: start: 20110101
  7. ATIVAN [Concomitant]
  8. DOXORUBICIN HCL [Concomitant]

REACTIONS (2)
  - UNDERDOSE [None]
  - NAUSEA [None]
